FAERS Safety Report 8031397-1 (Version None)
Quarter: 2012Q1

REPORT INFORMATION
  Report Type: 
  Country: None (occurrence: None)
  Receive Date: 20120109
  Receipt Date: 20120105
  Transmission Date: 20120608
  Serious: Yes (Life-Threatening, Hospitalization)
  Sender: FDA-Public Use
  Company Number: FR-ABBOTT-11P-056-0880311-00

PATIENT
  Sex: Male

DRUGS (1)
  1. HUMIRA [Suspect]
     Indication: PSORIASIS
     Route: 058
     Dates: start: 20080901, end: 20111001

REACTIONS (4)
  - SEPSIS [None]
  - SEPTIC ARTHRITIS STAPHYLOCOCCAL [None]
  - CEREBELLAR HAEMORRHAGE [None]
  - DEEP VEIN THROMBOSIS [None]
